FAERS Safety Report 5458031-9 (Version None)
Quarter: 2007Q3

REPORT INFORMATION
  Report Type: 
  Country: None (occurrence: None)
  Receive Date: 20070917
  Receipt Date: 20070917
  Transmission Date: 20080115
  Serious: No
  Sender: FDA-Public Use
  Company Number: None

PATIENT
  Sex: Female
  Weight: 82.3 kg

DRUGS (1)
  1. ZYVOX [Suspect]
     Indication: ENTEROCOCCAL INFECTION
     Dosage: 600MG Q12 IV
     Route: 042
     Dates: start: 20070814, end: 20070826

REACTIONS (1)
  - PLATELET COUNT DECREASED [None]
